FAERS Safety Report 21493822 (Version 2)
Quarter: 2022Q4

REPORT INFORMATION
  Report Type: Report from Study
  Country: MX (occurrence: MX)
  Receive Date: 20221021
  Receipt Date: 20221118
  Transmission Date: 20230112
  Serious: Yes (Death, Hospitalization, Other)
  Sender: FDA-Public Use
  Company Number: MX-BAYER-2022A147009

PATIENT
  Age: 41 Year
  Sex: Male

DRUGS (2)
  1. STIVARGA [Suspect]
     Active Substance: REGORAFENIB
     Indication: Colorectal cancer
     Dosage: 160 MG, QD IN THE MORNING
     Route: 048
     Dates: start: 20220803
  2. ACETAMINOPHEN [Concomitant]
     Active Substance: ACETAMINOPHEN
     Indication: Pyrexia
     Dosage: 750 MILLIGRAMS EVERY 8 HOURS
     Dates: start: 20220819

REACTIONS (4)
  - Oxygen saturation decreased [Fatal]
  - Tachycardia [Recovered/Resolved]
  - Dehydration [None]
  - Vomiting [Not Recovered/Not Resolved]

NARRATIVE: CASE EVENT DATE: 20221016
